FAERS Safety Report 17611625 (Version 1)
Quarter: 2020Q2

REPORT INFORMATION
  Report Type: Spontaneous
  Country: US (occurrence: US)
  Receive Date: 20200401
  Receipt Date: 20200401
  Transmission Date: 20200713
  Serious: Yes (Hospitalization)
  Sender: FDA-Public Use
  Company Number: US-BAYER-2019-058994

PATIENT
  Age: 68 Year
  Sex: Female

DRUGS (4)
  1. XARELTO [Suspect]
     Active Substance: RIVAROXABAN
     Indication: ATRIAL FIBRILLATION
     Dosage: UNK
     Route: 048
     Dates: start: 20160502, end: 20160919
  2. XARELTO [Suspect]
     Active Substance: RIVAROXABAN
     Indication: SUBCLAVIAN ARTERY THROMBOSIS
     Dosage: UNK
     Route: 048
     Dates: start: 201604, end: 201609
  3. BAYER LOW DOSE [Suspect]
     Active Substance: ASPIRIN
     Indication: ATRIAL FIBRILLATION
     Dosage: 81 MG, QD
     Route: 048
     Dates: end: 20160919
  4. BAYER LOW DOSE [Suspect]
     Active Substance: ASPIRIN
     Indication: SUBCLAVIAN ARTERY THROMBOSIS

REACTIONS (2)
  - Haematochezia [Unknown]
  - Haematoma [Recovered/Resolved]

NARRATIVE: CASE EVENT DATE: 2016
